FAERS Safety Report 4818151-6 (Version None)
Quarter: 2005Q4

REPORT INFORMATION
  Report Type: 
  Country: None (occurrence: None)
  Receive Date: 20051102
  Receipt Date: 20050926
  Transmission Date: 20060501
  Serious: Yes (Death)
  Sender: FDA-Public Use
  Company Number: US-SANOFI-SYNTHELABO-F03200500135

PATIENT
  Sex: Male

DRUGS (13)
  1. ELOXATIN [Suspect]
     Indication: COLORECTAL CANCER
     Route: 042
     Dates: start: 20050712, end: 20050712
  2. FLUOROURACIL [Suspect]
     Indication: COLORECTAL CANCER
     Route: 042
     Dates: start: 20050712, end: 20050712
  3. BEVACIZUMAB [Suspect]
     Indication: COLORECTAL CANCER
     Route: 042
     Dates: start: 20050628, end: 20050629
  4. LEUCOVORIN [Suspect]
     Indication: COLORECTAL CANCER
     Route: 042
     Dates: start: 20050712, end: 20050712
  5. METHADONE [Concomitant]
     Dosage: UNK
     Route: 065
  6. DILAUDID [Concomitant]
     Dosage: UNK
     Route: 048
  7. DURAGESIC-100 [Concomitant]
     Dosage: UNK
     Route: 062
  8. FENTANYL [Concomitant]
     Dosage: UNK
     Route: 062
  9. FLOMAX [Concomitant]
     Dosage: UNK
     Route: 065
  10. CIPROFLOXACIN [Concomitant]
     Dosage: UNK
     Route: 065
  11. PHENERGAN [Concomitant]
     Dosage: UNK
     Route: 065
  12. PROVIGIL [Concomitant]
     Dosage: UNK
     Route: 065
  13. ZOFRAN [Concomitant]
     Dosage: UNK
     Route: 065

REACTIONS (8)
  - ANGINA PECTORIS [None]
  - ATRIOVENTRICULAR BLOCK FIRST DEGREE [None]
  - BLOOD PRESSURE SYSTOLIC INCREASED [None]
  - CARDIAC ARREST [None]
  - LOSS OF CONSCIOUSNESS [None]
  - MALAISE [None]
  - ORAL INTAKE REDUCED [None]
  - SINUS BRADYCARDIA [None]
